FAERS Safety Report 25356586 (Version 1)
Quarter: 2025Q2

REPORT INFORMATION
  Report Type: Spontaneous
  Country: IL (occurrence: IL)
  Receive Date: 20250526
  Receipt Date: 20250526
  Transmission Date: 20250716
  Serious: Yes (Hospitalization, Other)
  Sender: BAXTER
  Company Number: IL-BAXTER-2025BAX015754

PATIENT
  Age: 69 Year
  Sex: Female

DRUGS (4)
  1. DOXORUBICIN [Suspect]
     Active Substance: DOXORUBICIN
     Indication: Ovarian cancer
     Dosage: 30 MG/M2, EVERY 4 WK
     Route: 042
     Dates: start: 20240930, end: 20241230
  2. MIRVETUXIMAB SORAVTANSINE [Suspect]
     Active Substance: MIRVETUXIMAB SORAVTANSINE
     Indication: Ovarian cancer
     Route: 065
  3. CARBOPLATIN [Suspect]
     Active Substance: CARBOPLATIN
     Indication: Ovarian cancer
     Dosage: 3 UNK, EVERY 4 WK (AUC3)
     Route: 042
     Dates: start: 20240930, end: 20241230
  4. BEVACIZUMAB [Suspect]
     Active Substance: BEVACIZUMAB
     Indication: Ovarian cancer
     Dosage: 5 MG/KG, EVERY 2 WK (DAY 1 AND DAY 15 OF 28-DAY CYCLE)
     Route: 042
     Dates: start: 20240930, end: 20250129

REACTIONS (2)
  - Pancytopenia [Recovered/Resolved]
  - Febrile neutropenia [Recovered/Resolved]

NARRATIVE: CASE EVENT DATE: 20250306
